FAERS Safety Report 9203817 (Version 1)
Quarter: 2013Q1

REPORT INFORMATION
  Report Type: Spontaneous
  Country: US (occurrence: None)
  Receive Date: 20120709
  Receipt Date: 20120709
  Transmission Date: 20140127
  Serious: No
  Sender: FDA-Public Use
  Company Number: 2012HGS-003544

PATIENT
  Age: 59 Year
  Sex: Female
  Weight: 74.39 kg

DRUGS (18)
  1. BENLYSTA [Suspect]
     Indication: SYSTEMIC LUPUS ERYTHEMATOSUS
     Dosage: 1 IN 28 D
     Route: 041
     Dates: start: 20120410
  2. LYRICA (PREGABALIN) (PREGABALIN) [Concomitant]
  3. FOLIC ACID (FOLIC ACID) (FOLIC ACID) [Concomitant]
  4. ZOVIRAX (ACICLOVIR) (ACICLOVIR) [Concomitant]
  5. ISORDIL (ISOSORBIDE DINITRATE) (ISOSORBIDE DINITRATE) [Concomitant]
  6. TOPROL XL (METOPROLOL SUCCINATE) (METOPROLOL SUCCINATE) [Concomitant]
  7. GAS X (SIMETICONE) (SIMETICONE) [Concomitant]
  8. VITAMIN B12 (CYANOCOBALAMIN) (CYANOCOBALAMIN) [Concomitant]
  9. CENTRUM SILVER (CENTRUM SILVER /01292501/ (ASCORBIC ACID, TOCOPHERYL ACETATE, RETINOL, ZINC, CALCIUM, VITAMINS NOS, MINERALS NOS, VITAMIN B NOS) [Concomitant]
  10. VITAMIN D (ERGOCALCIFEROL) (ERGOCALCIFEROL) [Concomitant]
  11. CALCIUM CALTRATE + VITAMIN D (OSCAL /00188401/ (ERGOCALCIFEROL, CALCIUM) [Concomitant]
  12. AMBIEN (ZOLPIDEM TARTRATE) (ZOLPIDEM TARTRATE) [Concomitant]
  13. BIOTIN (BIOTIN) (BIOTIN) [Concomitant]
  14. BENADRYL (DIPHENHYDRAMINE HYDROCHLORIDE) (DIPHENHYDRAMINE HYDROCHLORIDE) [Concomitant]
  15. RESTASIS (CICLOSPORIN) (CICLOSPORIN) [Concomitant]
  16. FENTANYL PATCH (FENTANYL CITRATE) (FENTANYL CITRATE) [Concomitant]
  17. LORTAB (VICODIN) (PARACETAMOL, HYDROCODONE BITARTRATE) [Concomitant]
  18. REFRESH EYE DROPS (CARMELLOSE) (CARMELLOSE) [Concomitant]

REACTIONS (5)
  - Feeling abnormal [None]
  - Feeling abnormal [None]
  - Headache [None]
  - Nausea [None]
  - Myalgia [None]
